FAERS Safety Report 13265367 (Version 1)
Quarter: 2017Q1

REPORT INFORMATION
  Report Type: Spontaneous
  Country: US (occurrence: US)
  Receive Date: 20170223
  Receipt Date: 20170223
  Transmission Date: 20170428
  Serious: No
  Sender: FDA-Public Use
  Company Number: US-ASTRAZENECA-2017SE19587

PATIENT
  Age: 20488 Day
  Sex: Female
  Weight: 91.6 kg

DRUGS (5)
  1. TRESIBA [Concomitant]
     Active Substance: INSULIN DEGLUDEC
     Indication: DIABETES MELLITUS
     Dosage: 25 CC, DAILY
     Route: 058
     Dates: start: 201702
  2. METFORMIN [Concomitant]
     Active Substance: METFORMIN HYDROCHLORIDE
     Indication: DIABETES MELLITUS
     Route: 048
  3. COMBINATION AMLODIPINE/VALSA/HCTZ [Concomitant]
     Indication: HYPERTENSION
     Dosage: 10/320/25 MG, DAILY
     Route: 048
  4. BYDUREON [Suspect]
     Active Substance: EXENATIDE
     Indication: TYPE 2 DIABETES MELLITUS
     Route: 058
     Dates: start: 20170220
  5. METFORMIN [Concomitant]
     Active Substance: METFORMIN HYDROCHLORIDE
     Indication: DIABETES MELLITUS
     Route: 048
     Dates: start: 1997

REACTIONS (3)
  - Blood glucose increased [Unknown]
  - Drug dose omission [Unknown]
  - Device use error [Recovered/Resolved]

NARRATIVE: CASE EVENT DATE: 20170219
